FAERS Safety Report 7957934-0 (Version None)
Quarter: 2011Q4

REPORT INFORMATION
  Report Type: 
  Country: None (occurrence: None)
  Receive Date: 20111205
  Receipt Date: 20111125
  Transmission Date: 20120403
  Serious: Yes (Other)
  Sender: FDA-Public Use
  Company Number: DE-ASTRAZENECA-2011SE72234

PATIENT

DRUGS (1)
  1. IRESSA [Suspect]
     Route: 048
     Dates: end: 20111101

REACTIONS (1)
  - TRANSAMINASES INCREASED [None]
